FAERS Safety Report 9752659 (Version 1)
Quarter: 2013Q4

REPORT INFORMATION
  Report Type: Spontaneous
  Country: US (occurrence: None)
  Receive Date: 20131212
  Receipt Date: 20131212
  Transmission Date: 20140711
  Serious: Yes (Life-Threatening)
  Sender: FDA-Public Use
  Company Number: None

PATIENT
  Age: 58 None
  Sex: Female

DRUGS (11)
  1. LOSARTAN [Suspect]
     Indication: HYPERTENSION
     Route: 048
     Dates: start: 20111218, end: 201308
  2. VITAMIN D [Concomitant]
  3. MULTI-VITAMIN [Concomitant]
  4. ASPIRIN [Concomitant]
  5. EDARBI [Concomitant]
  6. STATIN [Concomitant]
  7. MULTI VITAMIN W/POTASSIUM [Concomitant]
  8. MAGNESIUM [Concomitant]
  9. B-12 [Concomitant]
  10. B-6 [Concomitant]
  11. CQ10 [Concomitant]

REACTIONS (2)
  - Drug ineffective [None]
  - Product substitution issue [None]
